FAERS Safety Report 11295705 (Version 1)
Quarter: 2015Q3

REPORT INFORMATION
  Report Type: Spontaneous
  Country: US (occurrence: US)
  Receive Date: 20150722
  Receipt Date: 20150722
  Transmission Date: 20151125
  Serious: No
  Sender: FDA-Public Use
  Company Number: US-ELI_LILLY_AND_COMPANY-US200905004233

PATIENT
  Sex: Female

DRUGS (1)
  1. EVISTA [Suspect]
     Active Substance: RALOXIFENE HYDROCHLORIDE
     Dosage: UNK, UNKNOWN
     Route: 065

REACTIONS (9)
  - Osteoporosis [Unknown]
  - Fall [Unknown]
  - Drug ineffective [Unknown]
  - Joint swelling [Unknown]
  - Posture abnormal [Unknown]
  - Tooth fracture [Unknown]
  - Dental implantation [Unknown]
  - Joint injury [Unknown]
  - Sinusitis [Unknown]

NARRATIVE: CASE EVENT DATE: 2008
